FAERS Safety Report 10006605 (Version 2)
Quarter: 2014Q2

REPORT INFORMATION
  Report Type: Report from Study
  Country: CA (occurrence: CA)
  Receive Date: 20140313
  Receipt Date: 20140516
  Transmission Date: 20141212
  Serious: Yes (Hospitalization)
  Sender: FDA-Public Use
  Company Number: CA-JNJFOC-20140304363

PATIENT
  Age: 59 Year
  Sex: Male
  Weight: 73.48 kg

DRUGS (1)
  1. REMICADE [Suspect]
     Indication: CROHN^S DISEASE
     Route: 042
     Dates: start: 20110530

REACTIONS (3)
  - Scar [Not Recovered/Not Resolved]
  - Road traffic accident [Unknown]
  - Stoma site haemorrhage [Unknown]
